FAERS Safety Report 7753272-X (Version None)
Quarter: 2011Q3

REPORT INFORMATION
  Report Type: 
  Country: None (occurrence: None)
  Receive Date: 20110915
  Receipt Date: 20110811
  Transmission Date: 20111222
  Serious: No
  Sender: FDA-Public Use
  Company Number: US-GLAXOSMITHKLINE-A0940488A

PATIENT
  Age: 45 Year
  Sex: Female

DRUGS (2)
  1. NICORETTE [Suspect]
     Indication: EX-TOBACCO USER
     Dates: start: 20110712
  2. NICORETTE (MINT) [Suspect]
     Indication: EX-TOBACCO USER
     Dates: start: 20110712

REACTIONS (6)
  - TONGUE DISORDER [None]
  - GLOSSODYNIA [None]
  - INFECTIVE GLOSSITIS [None]
  - ORAL INFECTION [None]
  - DRUG ADMINISTRATION ERROR [None]
  - PARAESTHESIA ORAL [None]
